FAERS Safety Report 4972100-9 (Version None)
Quarter: 2006Q2

REPORT INFORMATION
  Report Type: 
  Country: None (occurrence: None)
  Receive Date: 20060412
  Receipt Date: 20060412
  Transmission Date: 20061013
  Serious: Yes (Hospitalization)
  Sender: FDA-Public Use
  Company Number: None

PATIENT
  Sex: Male
  Weight: 54 kg

DRUGS (2)
  1. PANTOPRAZOLE SODIUM [Suspect]
     Indication: DUODENAL ULCER PERFORATION
     Dosage: 40 MG BID PO
     Route: 048
     Dates: start: 20050413, end: 20060130
  2. PANTOPRAZOLE SODIUM [Suspect]
     Indication: GASTRITIS
     Dosage: 40 MG BID PO
     Route: 048
     Dates: start: 20050413, end: 20060130

REACTIONS (1)
  - RASH [None]
